FAERS Safety Report 12505332 (Version 3)
Quarter: 2016Q3

REPORT INFORMATION
  Report Type: Report from Study
  Country: PT (occurrence: PT)
  Receive Date: 20160628
  Receipt Date: 20160712
  Transmission Date: 20161109
  Serious: Yes (Life-Threatening, Hospitalization, Other)
  Sender: FDA-Public Use
  Company Number: PHHO2016PT009161

PATIENT
  Age: 59 Year
  Sex: Male

DRUGS (5)
  1. GILENYA [Suspect]
     Active Substance: FINGOLIMOD HYDROCHLORIDE
     Indication: MULTIPLE SCLEROSIS
     Dosage: 0.5 MG, QD
     Route: 048
     Dates: start: 20110119, end: 20160416
  2. AAS [Concomitant]
     Active Substance: ASPIRIN
     Indication: ACUTE MYOCARDIAL INFARCTION
     Dosage: 100 MG, QID
  3. PERINDOPRIL [Concomitant]
     Active Substance: PERINDOPRIL
     Indication: ACUTE MYOCARDIAL INFARCTION
     Dosage: 5 MG, QID
     Route: 065
  4. ATORVASTATINE ACTAVIS [Concomitant]
     Indication: ACUTE MYOCARDIAL INFARCTION
     Dosage: 20 MG, QID
  5. EZETROL [Concomitant]
     Active Substance: EZETIMIBE
     Indication: ACUTE MYOCARDIAL INFARCTION
     Dosage: 10 MG, QID
     Route: 065

REACTIONS (1)
  - Squamous cell carcinoma of lung [Not Recovered/Not Resolved]

NARRATIVE: CASE EVENT DATE: 20160407
